FAERS Safety Report 25137041 (Version 1)
Quarter: 2025Q1

REPORT INFORMATION
  Report Type: Spontaneous
  Country: KW (occurrence: KW)
  Receive Date: 20250328
  Receipt Date: 20250328
  Transmission Date: 20250409
  Serious: Yes (Hospitalization, Other)
  Sender: APELLIS PHARMACEUTICALS
  Company Number: KW-BIOVITRUM-2025-KW-003664

PATIENT

DRUGS (1)
  1. PEGCETACOPLAN [Suspect]
     Active Substance: PEGCETACOPLAN
     Indication: Combined immunodeficiency

REACTIONS (4)
  - Renal impairment [Unknown]
  - Blood creatinine increased [Unknown]
  - Full blood count decreased [Unknown]
  - Off label use [Unknown]
